FAERS Safety Report 5414985-8 (Version None)
Quarter: 2007Q3

REPORT INFORMATION
  Report Type: 
  Country: None (occurrence: None)
  Receive Date: 20070813
  Receipt Date: 20070416
  Transmission Date: 20080115
  Serious: Yes (Other)
  Sender: FDA-Public Use
  Company Number: HK-GDP-0715210

PATIENT
  Age: 41 Year
  Sex: Female
  Weight: 52 kg

DRUGS (1)
  1. TRI-LUMA [Suspect]
     Indication: CHLOASMA
     Dosage: 1 APP QD TP
     Route: 061
     Dates: start: 20061223, end: 20070409

REACTIONS (6)
  - CHLOASMA [None]
  - DEPRESSION [None]
  - ERYTHEMA [None]
  - POST INFLAMMATORY PIGMENTATION CHANGE [None]
  - SKIN EXFOLIATION [None]
  - SKIN INFLAMMATION [None]
